FAERS Safety Report 17077122 (Version 1)
Quarter: 2019Q4

REPORT INFORMATION
  Report Type: Spontaneous
  Country: CN (occurrence: CN)
  Receive Date: 20191126
  Receipt Date: 20191126
  Transmission Date: 20200122
  Serious: Yes (Other)
  Sender: FDA-Public Use
  Company Number: CN-PFIZER INC-2019507773

PATIENT
  Age: 91 Year
  Sex: Female
  Weight: 43 kg

DRUGS (4)
  1. LIPITOR [Suspect]
     Active Substance: ATORVASTATIN CALCIUM
     Indication: LIPIDS INCREASED
     Dosage: 20 MG, 1X/DAY
     Route: 048
     Dates: start: 20191104, end: 20191107
  2. LANSOPRAZOLE. [Suspect]
     Active Substance: LANSOPRAZOLE
     Indication: ABDOMINAL DISCOMFORT
     Dosage: 15 MG, 1X/DAY
     Route: 048
     Dates: start: 20191104, end: 20191107
  3. ADALAT [Suspect]
     Active Substance: NIFEDIPINE
     Indication: BLOOD PRESSURE INCREASED
     Dosage: 30 MG, 1X/DAY
     Route: 048
     Dates: start: 20191104, end: 20191107
  4. BAYASPIRIN [Suspect]
     Active Substance: ASPIRIN
     Indication: THROMBOSIS
     Dosage: 0.1 G, 1X/DAY
     Route: 048
     Dates: start: 20191104, end: 20191107

REACTIONS (3)
  - Ecchymosis [Recovering/Resolving]
  - Haemorrhage subcutaneous [Recovering/Resolving]
  - Periorbital haemorrhage [Recovering/Resolving]

NARRATIVE: CASE EVENT DATE: 20191107
